FAERS Safety Report 5655454-X (Version None)
Quarter: 2008Q1

REPORT INFORMATION
  Report Type: 
  Country: None (occurrence: None)
  Receive Date: 20080307
  Receipt Date: 20080226
  Transmission Date: 20080703
  Serious: Yes (Hospitalization, Other)
  Sender: FDA-Public Use
  Company Number: US-ELI_LILLY_AND_COMPANY-US200712000738

PATIENT
  Sex: Female
  Weight: 95.238 kg

DRUGS (13)
  1. BYETTA [Suspect]
     Dosage: 5 UG, 2/D
     Route: 058
     Dates: start: 20070618
  2. LIPITOR [Concomitant]
     Indication: BLOOD CHOLESTEROL INCREASED
     Dosage: UNK, UNKNOWN
     Route: 048
     Dates: start: 20030101, end: 20070711
  3. CELLCEPT [Concomitant]
     Indication: PROPHYLAXIS AGAINST TRANSPLANT REJECTION
     Dosage: 1000 MG, 2/D
     Route: 048
     Dates: start: 19960101
  4. GENGRAF [Concomitant]
     Indication: PROPHYLAXIS AGAINST TRANSPLANT REJECTION
     Dosage: 50 MG, 2/D
     Route: 048
     Dates: start: 19960101
  5. COZAAR [Concomitant]
     Indication: HYPERTENSION
     Dosage: 100 MG, DAILY (1/D)
     Route: 048
     Dates: start: 19960101
  6. DILTIAZEM [Concomitant]
     Indication: HYPERTENSION
     Dosage: 300 MG, DAILY (1/D)
     Route: 048
     Dates: start: 19960101
  7. ACYCLOVIR [Concomitant]
     Indication: PROPHYLAXIS AGAINST TRANSPLANT REJECTION
     Dosage: 200 MG, 2/D
     Route: 048
     Dates: start: 19960101
  8. LASIX [Concomitant]
     Indication: HYPERTENSION
     Dosage: 40 MG, DAILY (1/D)
     Route: 048
     Dates: start: 19960101
  9. CHLORACON [Concomitant]
     Indication: MINERAL SUPPLEMENTATION
     Dosage: 10 MG, 2/D
     Route: 048
     Dates: start: 19960101
  10. ASPIRIN [Concomitant]
     Indication: PROPHYLAXIS AGAINST TRANSPLANT REJECTION
     Dosage: 81 MG, DAILY (1/D)
     Route: 048
     Dates: start: 19960101
  11. CITALOPRAM HYDROBROMIDE [Concomitant]
     Indication: DEPRESSION
     Dosage: 40 MG, DAILY (1/D)
     Route: 048
  12. ZETIA [Concomitant]
     Indication: DYSLIPIDAEMIA
     Dosage: 10 MG, DAILY (1/D)
     Route: 048
     Dates: start: 20070701
  13. METFORMIN HCL [Concomitant]
     Indication: DIABETES MELLITUS
     Dosage: 500 MG, DAILY (1/D)
     Dates: start: 20070403

REACTIONS (6)
  - DECREASED APPETITE [None]
  - ERUCTATION [None]
  - HYPOTHYROIDISM [None]
  - NAUSEA [None]
  - RHABDOMYOLYSIS [None]
  - WEIGHT DECREASED [None]
